FAERS Safety Report 16939714 (Version 2)
Quarter: 2019Q4

REPORT INFORMATION
  Report Type: Not Available
  Country: US (occurrence: US)
  Receive Date: 20191021
  Receipt Date: 20191030
  Transmission Date: 20200122
  Serious: No
  Sender: FDA-Public Use
  Company Number: US-NEUROCRINE BIOSCIENCES INC.-2019NBI03028

PATIENT
  Age: 72 Year
  Sex: Female

DRUGS (5)
  1. INGREZZA [Suspect]
     Active Substance: VALBENAZINE
     Indication: TARDIVE DYSKINESIA
     Route: 048
     Dates: start: 20190930, end: 20191012
  2. ABILIFY [Concomitant]
     Active Substance: ARIPIPRAZOLE
  3. GABAPENTIN. [Concomitant]
     Active Substance: GABAPENTIN
  4. INGREZZA [Suspect]
     Active Substance: VALBENAZINE
     Route: 048
     Dates: start: 20191013, end: 201910
  5. VENLAFAXINE [Concomitant]
     Active Substance: VENLAFAXINE HYDROCHLORIDE

REACTIONS (8)
  - Depression [Recovered/Resolved]
  - Arthralgia [Unknown]
  - Anxiety [Unknown]
  - Somnolence [Unknown]
  - Heart rate irregular [Unknown]
  - Musculoskeletal pain [Recovered/Resolved]
  - Therapeutic product effect decreased [None]
  - Sedation [Unknown]

NARRATIVE: CASE EVENT DATE: 20191001
